FAERS Safety Report 10429250 (Version 1)
Quarter: 2014Q3

REPORT INFORMATION
  Report Type: Spontaneous
  Country: HR (occurrence: HR)
  Receive Date: 20140904
  Receipt Date: 20140904
  Transmission Date: 20150326
  Serious: Yes (Death)
  Sender: FDA-Public Use
  Company Number: HR-ACCORD-025666

PATIENT
  Age: 45 Year
  Sex: Female

DRUGS (3)
  1. FOLINIC ACID [Suspect]
     Active Substance: LEUCOVORIN
     Indication: COLORECTAL CANCER METASTATIC
     Dosage: IN 2 HOUR INFUSION.
  2. FLUOROURACIL. [Suspect]
     Active Substance: FLUOROURACIL
     Indication: COLORECTAL CANCER METASTATIC
     Dosage: ON D1:C1- 400 MG/M2, 2400 MG/M2 (IN 48 HOURS INFUSION) DURING DAY 1 AND DAY 2
  3. IRINOTECAN [Suspect]
     Active Substance: IRINOTECAN
     Indication: COLORECTAL CANCER METASTATIC
     Dosage: IN 2 HRS INFUSION.

REACTIONS (1)
  - Posterior reversible encephalopathy syndrome [Fatal]
